FAERS Safety Report 8397089-4 (Version None)
Quarter: 2012Q2

REPORT INFORMATION
  Report Type: 
  Country: None (occurrence: None)
  Receive Date: 20120530
  Receipt Date: 20120522
  Transmission Date: 20120825
  Serious: Yes (Other)
  Sender: FDA-Public Use
  Company Number: CHPA2012TR010974

PATIENT
  Age: 25 Year
  Sex: Male

DRUGS (1)
  1. THERAFLU FORTE [Suspect]
     Indication: INFLUENZA
     Dosage: UNK, UNK
     Dates: start: 20100101, end: 20100101

REACTIONS (4)
  - ABDOMINAL PAIN [None]
  - ERYTHEMA [None]
  - SKIN EXFOLIATION [None]
  - QUALITY OF LIFE DECREASED [None]
